FAERS Safety Report 19305808 (Version 3)
Quarter: 2022Q4

REPORT INFORMATION
  Report Type: Spontaneous
  Country: US (occurrence: US)
  Receive Date: 20210525
  Receipt Date: 20221121
  Transmission Date: 20230112
  Serious: No
  Sender: FDA-Public Use
  Company Number: US-PHARMING-PHAUS2021000245

PATIENT

DRUGS (2)
  1. RUCONEST [Suspect]
     Active Substance: HUMAN C1-ESTERASE INHIBITOR
     Indication: Hereditary angioedema
     Dosage: 4200 IU, ONCE WEEKLY
     Route: 042
     Dates: start: 20210218
  2. RUCONEST [Suspect]
     Active Substance: HUMAN C1-ESTERASE INHIBITOR
     Dosage: 2100 IU, TWICE WEEKLY
     Route: 042
     Dates: start: 202102

REACTIONS (4)
  - Product dose omission issue [Unknown]
  - Road traffic accident [Unknown]
  - Weight increased [Unknown]
  - Intentional product use issue [Unknown]

NARRATIVE: CASE EVENT DATE: 20210423
